FAERS Safety Report 5439300-5 (Version None)
Quarter: 2007Q3

REPORT INFORMATION
  Report Type: 
  Country: None (occurrence: None)
  Receive Date: 20070831
  Receipt Date: 20070823
  Transmission Date: 20080115
  Serious: Yes (Hospitalization)
  Sender: FDA-Public Use
  Company Number: US-ELI_LILLY_AND_COMPANY-US200708005553

PATIENT
  Sex: Female

DRUGS (1)
  1. BYETTA [Suspect]
     Indication: DRUG USE FOR UNKNOWN INDICATION
     Dosage: 5 U, UNK
     Dates: start: 20070718, end: 20070101

REACTIONS (4)
  - ABDOMINAL PAIN UPPER [None]
  - HOSPITALISATION [None]
  - RETCHING [None]
  - VOMITING [None]
